FAERS Safety Report 19117480 (Version 2)
Quarter: 2021Q2

REPORT INFORMATION
  Report Type: Report from Study
  Country: CA (occurrence: CA)
  Receive Date: 20210409
  Receipt Date: 20210528
  Transmission Date: 20210717
  Serious: Yes (Hospitalization, Other)
  Sender: FDA-Public Use
  Company Number: CA-REGENERON PHARMACEUTICALS, INC.-2021-38029

PATIENT

DRUGS (1)
  1. EYLEA [Suspect]
     Active Substance: AFLIBERCEPT
     Indication: DIABETIC RETINAL OEDEMA
     Dosage: DOSE, FREQUENCY AND TOTAL NUMBER OF DOSES NOT REPORTED
     Dates: start: 20210326

REACTIONS (3)
  - Hospitalisation [Not Recovered/Not Resolved]
  - Illness [Unknown]
  - Glaucoma [Unknown]
